FAERS Safety Report 6616328-0 (Version None)
Quarter: 2010Q1

REPORT INFORMATION
  Report Type: 
  Country: None (occurrence: None)
  Receive Date: 20100226
  Receipt Date: 20100216
  Transmission Date: 20100710
  Serious: Yes (Hospitalization)
  Sender: FDA-Public Use
  Company Number: B0635799A

PATIENT
  Age: 70 Year
  Sex: Female

DRUGS (5)
  1. ROPINIROLE HYDROCHLORIDE [Suspect]
     Indication: PARKINSON'S DISEASE
     Dosage: 15 MG / PER DAY /
  2. MIRTAZAPINE [Concomitant]
  3. CITALOPRAM HYDROBROMIDE [Concomitant]
  4. LEVODOPA [Concomitant]
  5. ENTACAPONE [Concomitant]

REACTIONS (5)
  - ANXIETY [None]
  - DELUSION [None]
  - DRUG INEFFECTIVE [None]
  - MAJOR DEPRESSION [None]
  - PARANOIA [None]
